FAERS Safety Report 8275209 (Version 3)
Quarter: 2013Q2

REPORT INFORMATION
  Report Type: Spontaneous
  Country: US (occurrence: US)
  Receive Date: 20111205
  Receipt Date: 20130506
  Transmission Date: 20140414
  Serious: Yes (Hospitalization)
  Sender: FDA-Public Use
  Company Number: US-GLAXOSMITHKLINE-A0928738A

PATIENT
  Age: 53 Year
  Sex: Male
  Weight: 93.6 kg

DRUGS (1)
  1. AVANDIA [Suspect]
     Indication: DIABETES MELLITUS
     Dosage: 8MG PER DAY
     Route: 048
     Dates: start: 20041007, end: 200412

REACTIONS (3)
  - Myocardial infarction [Unknown]
  - Hypertension [Unknown]
  - Angina unstable [Unknown]
